FAERS Safety Report 10630477 (Version 1)
Quarter: 2014Q4

REPORT INFORMATION
  Report Type: Spontaneous
  Country: US (occurrence: US)
  Receive Date: 20141205
  Receipt Date: 20141205
  Transmission Date: 20150529
  Serious: No
  Sender: FDA-Public Use
  Company Number: US-BRISTOL-MYERS SQUIBB COMPANY-19297829

PATIENT
  Age: 60 Year
  Sex: Female
  Weight: 117.94 kg

DRUGS (11)
  1. STARLIX [Concomitant]
     Active Substance: NATEGLINIDE
     Indication: TYPE 2 DIABETES MELLITUS
  2. DIOVAN [Concomitant]
     Active Substance: VALSARTAN
     Indication: BLOOD PRESSURE
     Dosage: DIOVAN ^NOVARTIS^
  3. NOVOLOG [Concomitant]
     Active Substance: INSULIN ASPART
     Dosage: NOVOLOG FLEX PEN
     Route: 058
     Dates: start: 2004
  4. SYMLIN [Suspect]
     Active Substance: PRAMLINTIDE ACETATE
     Indication: TYPE 2 DIABETES MELLITUS
     Dosage: SYMLIN INJECTION
     Route: 058
     Dates: start: 20051004, end: 200511
  5. INSULIN 70/30 [Concomitant]
     Active Substance: INSULIN HUMAN
     Indication: TYPE 2 DIABETES MELLITUS
  6. BYETTA [Suspect]
     Active Substance: EXENATIDE
     Indication: TYPE 2 DIABETES MELLITUS
     Dosage: BYETTA INJECTION
     Route: 058
     Dates: start: 20050827, end: 20050926
  7. NOVOLOG 70/30 [Concomitant]
     Route: 058
     Dates: start: 2004
  8. IBUPROFEN. [Suspect]
     Active Substance: IBUPROFEN
     Indication: PAIN
     Route: 048
  9. LIPITOR [Concomitant]
     Active Substance: ATORVASTATIN CALCIUM
     Indication: BLOOD CHOLESTEROL
  10. AVANDIA [Concomitant]
     Active Substance: ROSIGLITAZONE MALEATE
     Indication: TYPE 2 DIABETES MELLITUS
  11. INSULIN REGULAR [Concomitant]
     Active Substance: INSULIN NOS
     Indication: TYPE 2 DIABETES MELLITUS

REACTIONS (5)
  - Blood glucose fluctuation [Recovered/Resolved]
  - Urticaria [Recovered/Resolved]
  - Blood glucose decreased [Recovered/Resolved]
  - Nausea [Unknown]
  - Dyspepsia [Recovered/Resolved]

NARRATIVE: CASE EVENT DATE: 2005
